FAERS Safety Report 16383592 (Version 1)
Quarter: 2019Q2

REPORT INFORMATION
  Report Type: Spontaneous
  Country: US (occurrence: US)
  Receive Date: 20190531
  Receipt Date: 20190531
  Transmission Date: 20190711
  Serious: No
  Sender: FDA-Public Use
  Company Number: None

PATIENT
  Age: 8 Year
  Sex: Female
  Weight: 42.75 kg

DRUGS (1)
  1. CHILDRENS FLUTICASONE PROPIONATE NASAL SPRAY [Suspect]
     Active Substance: FLUTICASONE PROPIONATE
     Indication: HYPERSENSITIVITY
     Route: 055
     Dates: start: 20190420, end: 20190528

REACTIONS (3)
  - Rhinalgia [None]
  - Nasal mucosal disorder [None]
  - Skin exfoliation [None]

NARRATIVE: CASE EVENT DATE: 20190531
